FAERS Safety Report 6785175-1 (Version None)
Quarter: 2010Q2

REPORT INFORMATION
  Report Type: 
  Country: None (occurrence: None)
  Receive Date: 20100621
  Receipt Date: 20100621
  Transmission Date: 20101027
  Serious: Yes (Other)
  Sender: FDA-Public Use
  Company Number: None

PATIENT
  Age: 58 Year
  Sex: Male
  Weight: 74.3899 kg

DRUGS (1)
  1. CIPROFLOXACIN [Suspect]
     Indication: PROSTATITIS
     Dosage: 1 TABLET TWICE DAILY FOR 14 DAYS PO
     Route: 048
     Dates: start: 20100120, end: 20100203

REACTIONS (9)
  - ARTHRALGIA [None]
  - FEELING ABNORMAL [None]
  - JOINT SWELLING [None]
  - MUSCULAR WEAKNESS [None]
  - MUSCULOSKELETAL DISORDER [None]
  - MYALGIA [None]
  - PAIN [None]
  - SWELLING [None]
  - TENDON DISORDER [None]
